FAERS Safety Report 13355062 (Version 1)
Quarter: 2017Q1

REPORT INFORMATION
  Report Type: Spontaneous
  Country: US (occurrence: US)
  Receive Date: 20170321
  Receipt Date: 20170321
  Transmission Date: 20170429
  Serious: Yes (Other)
  Sender: FDA-Public Use
  Company Number: US-SANOFI-AVENTIS-2013SA088475

PATIENT
  Age: 83 Year
  Sex: Male

DRUGS (4)
  1. LANTUS SOLOSTAR [Suspect]
     Active Substance: INSULIN GLARGINE
     Indication: TYPE 2 DIABETES MELLITUS
     Dosage: DOSE-  STARTED AT 6 UNITS, WENT TO 8 TO 10, THEN 10 TO 12 AND IS CURRENTLY TAKING 12 UNIT
     Route: 051
     Dates: start: 2001
  2. LANTUS SOLOSTAR [Suspect]
     Active Substance: INSULIN GLARGINE
     Indication: TYPE 2 DIABETES MELLITUS
     Dosage: DOSE-  STARTED AT 6 UNITS, WENT TO 8 TO 10, THEN 10 TO 12 AND IS CURRENTLY TAKING 12 UNIT
     Route: 051
     Dates: start: 2001
  3. SOLOSTAR [Concomitant]
     Active Substance: DEVICE
     Indication: TYPE 2 DIABETES MELLITUS
     Dates: start: 2001
  4. SOLOSTAR [Concomitant]
     Active Substance: DEVICE
     Indication: TYPE 2 DIABETES MELLITUS
     Dates: start: 2001

REACTIONS (3)
  - Prostate cancer [Unknown]
  - Incorrect product storage [Unknown]
  - Blood glucose increased [Unknown]

NARRATIVE: CASE EVENT DATE: 20130831
